FAERS Safety Report 18118665 (Version 1)
Quarter: 2020Q3

REPORT INFORMATION
  Report Type: Spontaneous
  Country: US (occurrence: US)
  Receive Date: 20200806
  Receipt Date: 20200806
  Transmission Date: 20201103
  Serious: No
  Sender: FDA-Public Use
  Company Number: None

PATIENT
  Age: 72 Year
  Sex: Male
  Weight: 61.7 kg

DRUGS (10)
  1. DIAZEPAM 5 MG TABLET [Concomitant]
     Dates: start: 20200804
  2. FENTANYL 50 MCG IV PUSH [Concomitant]
     Dates: start: 20200804
  3. IODIXANOL 320 MG/ML ? 60 ML [Concomitant]
     Dates: start: 20200804
  4. LIDOCAINE 10 MG/ML INFLITRATION [Concomitant]
     Dates: start: 20200804
  5. MIDAZOLAM 2 MG IV PUSH [Concomitant]
     Dates: start: 20200804
  6. HEPARIN SODIUM INJECTION, USP [Suspect]
     Active Substance: HEPARIN SODIUM
     Indication: CATHETERISATION CARDIAC
     Dosage: ?          OTHER FREQUENCY:ONCE;?
     Route: 040
     Dates: start: 20200804, end: 20200804
  7. DIPHENHYDRAMINE 25 MG CAPSULE [Concomitant]
     Dates: start: 20200804
  8. HEPARIN 1000 UNIT/500 ML INFUSION (INTRA?ARTERIAL) [Concomitant]
     Dates: start: 20200804
  9. ASPIRIN 325 MG TABLET [Concomitant]
     Dates: start: 20200804
  10. NITROGLYCERIN 4 MG INTRA?CORONARY [Concomitant]
     Dates: start: 20200804

REACTIONS (3)
  - Product substitution issue [None]
  - Therapeutic response decreased [None]
  - Coagulation time shortened [None]

NARRATIVE: CASE EVENT DATE: 20200804
